FAERS Safety Report 22054936 (Version 1)
Quarter: 2023Q1

REPORT INFORMATION
  Report Type: Spontaneous
  Country: PR (occurrence: PR)
  Receive Date: 20230302
  Receipt Date: 20230302
  Transmission Date: 20230418
  Serious: Yes (Other)
  Sender: FDA-Public Use
  Company Number: PR-PFIZER INC-PV202200127593

PATIENT
  Age: 49 Year
  Sex: Female

DRUGS (2)
  1. CIBINQO [Suspect]
     Active Substance: ABROCITINIB
     Dosage: TWO PILLS TWICE DAILY/TAKING TWO 100MG PILLS
  2. CIBINQO [Suspect]
     Active Substance: ABROCITINIB
     Dosage: 200 MG, 1X/DAY
     Route: 048

REACTIONS (3)
  - Glaucoma [Unknown]
  - Therapeutic product effect incomplete [Unknown]
  - Off label use [Unknown]
